FAERS Safety Report 9261934 (Version 2)
Quarter: 2013Q2

REPORT INFORMATION
  Report Type: Spontaneous
  Country: US (occurrence: US)
  Receive Date: 20130429
  Receipt Date: 20130507
  Transmission Date: 20140414
  Serious: Yes (Hospitalization, Other)
  Sender: FDA-Public Use
  Company Number: US-BAXTER-2013BAX015098

PATIENT
  Age: 76 Year
  Sex: Male

DRUGS (4)
  1. DIANEAL LOW CALCIUM [Suspect]
     Indication: PERITONEAL DIALYSIS
     Dosage: NIGHTLY
     Route: 033
     Dates: start: 20121119, end: 20130413
  2. DIANEAL LOW CALCIUM [Suspect]
     Route: 033
     Dates: start: 20130416
  3. DIANEAL LOW CALCIUM [Suspect]
     Indication: PERITONEAL DIALYSIS
     Dosage: NIGHTLY
     Route: 033
     Dates: start: 20121119, end: 20130413
  4. DIANEAL LOW CALCIUM [Suspect]
     Route: 033
     Dates: start: 20130416

REACTIONS (2)
  - Peritoneal perforation [Recovering/Resolving]
  - Pleuroperitoneal communication [Recovering/Resolving]
